FAERS Safety Report 8890766 (Version 2)
Quarter: 2015Q1

REPORT INFORMATION
  Report Type: Spontaneous
  Country: CA (occurrence: CA)
  Receive Date: 20121107
  Receipt Date: 20150323
  Transmission Date: 20150721
  Serious: Yes (Hospitalization, Other)
  Sender: FDA-Public Use
  Company Number: CA-ROCHE-1151528

PATIENT
  Sex: Female

DRUGS (5)
  1. ALVESCO [Concomitant]
     Active Substance: CICLESONIDE
  2. XOLAIR [Suspect]
     Active Substance: OMALIZUMAB
     Indication: ASTHMA
     Route: 058
     Dates: start: 20101029
  3. NASONEX [Concomitant]
     Active Substance: MOMETASONE FUROATE
  4. PREDNISONE. [Concomitant]
     Active Substance: PREDNISONE
  5. METHYL PREDNISOLONE SODIUM SUCCINATE [Concomitant]
     Active Substance: METHYLPREDNISOLONE SODIUM SUCCINATE

REACTIONS (4)
  - Rhinovirus infection [Unknown]
  - Bronchopulmonary aspergillosis allergic [Unknown]
  - Upper respiratory tract infection [Unknown]
  - Asthma [Unknown]
